FAERS Safety Report 5814124-5 (Version None)
Quarter: 2008Q3

REPORT INFORMATION
  Report Type: 
  Country: None (occurrence: None)
  Receive Date: 20080717
  Receipt Date: 20080707
  Transmission Date: 20090109
  Serious: Yes (Hospitalization)
  Sender: FDA-Public Use
  Company Number: JP-PFIZER INC-2008056718

PATIENT
  Sex: Male

DRUGS (6)
  1. ALDACTONE [Suspect]
     Route: 048
  2. INVESTIGATIONAL DRUG [Suspect]
     Indication: LEUKAEMIA
     Route: 048
  3. LASIX [Suspect]
     Route: 048
  4. MYONAL [Suspect]
     Indication: MYALGIA
     Route: 048
  5. MAGNESIUM OXIDE [Suspect]
     Route: 048
  6. BIOFERMIN R [Suspect]
     Route: 048

REACTIONS (1)
  - ENTERITIS INFECTIOUS [None]
